FAERS Safety Report 7504098-3 (Version None)
Quarter: 2011Q2

REPORT INFORMATION
  Report Type: 
  Country: None (occurrence: None)
  Receive Date: 20110525
  Receipt Date: 20110523
  Transmission Date: 20111010
  Serious: Yes (Hospitalization, Other)
  Sender: FDA-Public Use
  Company Number: DE-ABBOTT-11P-062-0727794-00

PATIENT
  Sex: Female

DRUGS (2)
  1. HUMIRA [Suspect]
     Indication: PSORIASIS
     Route: 058
     Dates: start: 20101115, end: 20110322
  2. MTX [Concomitant]
     Indication: PSORIASIS
     Dates: start: 20110301

REACTIONS (3)
  - PSORIASIS [None]
  - SKIN HAEMORRHAGE [None]
  - LACERATION [None]
